FAERS Safety Report 7807923-1 (Version None)
Quarter: 2011Q4

REPORT INFORMATION
  Report Type: 
  Country: None (occurrence: None)
  Receive Date: 20111011
  Receipt Date: 20111011
  Transmission Date: 20120403
  Serious: Yes (Other)
  Sender: FDA-Public Use
  Company Number: None

PATIENT
  Age: 7 Year
  Sex: Male
  Weight: 19.958 kg

DRUGS (2)
  1. SINGULAIR [Suspect]
     Indication: ASTHMA
     Dosage: 5MG
     Route: 048
     Dates: start: 20110829, end: 20111005
  2. SINGULAIR [Suspect]
     Indication: NASOPHARYNGITIS
     Dosage: 5MG
     Route: 048
     Dates: start: 20110829, end: 20111005

REACTIONS (9)
  - ANXIETY [None]
  - SCREAMING [None]
  - ANGER [None]
  - MIDDLE INSOMNIA [None]
  - AGGRESSION [None]
  - HEAD BANGING [None]
  - HEADACHE [None]
  - ABNORMAL BEHAVIOUR [None]
  - SCHOOL REFUSAL [None]
